FAERS Safety Report 11738214 (Version 6)
Quarter: 2022Q1

REPORT INFORMATION
  Report Type: Spontaneous
  Country: US (occurrence: US)
  Receive Date: 20151113
  Receipt Date: 20220106
  Transmission Date: 20220424
  Serious: Yes (Other)
  Sender: FDA-Public Use
  Company Number: US-PFIZER INC-2015386344

PATIENT
  Age: 75 Year
  Sex: Female
  Weight: 54 kg

DRUGS (5)
  1. PREMARIN [Suspect]
     Active Substance: ESTROGENS, CONJUGATED
     Indication: Hormone replacement therapy
     Dosage: 1.25 MG, DAILY
     Dates: start: 1979
  2. PREMARIN [Suspect]
     Active Substance: ESTROGENS, CONJUGATED
     Dosage: 1.25 MG, DAILY
  3. CLIDINIUM [Concomitant]
     Active Substance: CLIDINIUM
     Indication: Gastric disorder
     Dosage: 2.5 MG, 1X/DAY
     Dates: start: 1997
  4. CLIDINIUM [Concomitant]
     Active Substance: CLIDINIUM
     Indication: Irritable bowel syndrome
  5. CLIDINIUM [Concomitant]
     Active Substance: CLIDINIUM
     Indication: Stress

REACTIONS (5)
  - Retinal tear [Recovered/Resolved]
  - Visual field defect [Recovered/Resolved]
  - Conjunctival hyperaemia [Recovered/Resolved]
  - Feeling abnormal [Unknown]
  - Illness [Unknown]

NARRATIVE: CASE EVENT DATE: 20150812
